FAERS Safety Report 15378506 (Version 1)
Quarter: 2018Q3

REPORT INFORMATION
  Report Type: Spontaneous
  Country: US (occurrence: US)
  Receive Date: 20180906
  Receipt Date: 20180906
  Transmission Date: 20181010
  Serious: Yes (Other)
  Sender: FDA-Public Use
  Company Number: None

PATIENT
  Age: 27 Year
  Sex: Female
  Weight: 79.6 kg

DRUGS (1)
  1. OMALIZUMAB, 150 MG [Suspect]
     Active Substance: OMALIZUMAB

REACTIONS (2)
  - Abortion spontaneous [None]
  - Maternal exposure during pregnancy [None]
